FAERS Safety Report 4961079-1 (Version None)
Quarter: 2006Q1

REPORT INFORMATION
  Report Type: 
  Country: None (occurrence: None)
  Receive Date: 20060127
  Receipt Date: 20050831
  Transmission Date: 20060701
  Serious: Yes (Hospitalization)
  Sender: FDA-Public Use
  Company Number: 2005-US-00042

PATIENT
  Age: 61 Year
  Sex: Male

DRUGS (1)
  1. CLOZAPINE [Suspect]
     Dosage: 100MG QD, ORAL
     Route: 048
     Dates: start: 20011207, end: 20050808

REACTIONS (1)
  - VOMITING [None]
